FAERS Safety Report 6051898-5 (Version None)
Quarter: 2009Q1

REPORT INFORMATION
  Report Type: 
  Country: None (occurrence: None)
  Receive Date: 20090122
  Receipt Date: 20090122
  Transmission Date: 20090719
  Serious: Yes (Other)
  Sender: FDA-Public Use
  Company Number: None

PATIENT
  Sex: Female
  Weight: 53.5244 kg

DRUGS (2)
  1. SPIRONOLACTONE [Suspect]
     Indication: HYPERTENSION
     Dosage: 1/2 PILL DAILY BUCCAL
     Route: 002
     Dates: start: 20080220, end: 20081230
  2. SPIRONOLACTONE [Suspect]
     Indication: RENAL IMPAIRMENT
     Dosage: 1/2 PILL DAILY BUCCAL
     Route: 002
     Dates: start: 20080220, end: 20081230

REACTIONS (5)
  - ASTHENIA [None]
  - BRONCHITIS [None]
  - HEAD TITUBATION [None]
  - SNEEZING [None]
  - VOMITING [None]
